FAERS Safety Report 7479169-0 (Version None)
Quarter: 2011Q2

REPORT INFORMATION
  Report Type: 
  Country: None (occurrence: None)
  Receive Date: 20110513
  Receipt Date: 20110511
  Transmission Date: 20111010
  Serious: Yes (Other)
  Sender: FDA-Public Use
  Company Number: US-BRISTOL-MYERS SQUIBB COMPANY-15674617

PATIENT
  Age: 75 Year
  Sex: Male
  Weight: 90 kg

DRUGS (6)
  1. MUCINEX [Concomitant]
  2. COUMADIN [Suspect]
     Indication: ATRIAL FIBRILLATION
     Dosage: 5 DAYS/WEEK,7.5MG ON TWO DAYS/WEEK
     Route: 048
  3. CALCIUM + VITAMIN D [Concomitant]
  4. VERAPAMIL [Concomitant]
  5. FORADIL [Concomitant]
  6. ASMANEX TWISTHALER [Concomitant]

REACTIONS (2)
  - MEMORY IMPAIRMENT [None]
  - ASTHENIA [None]
